FAERS Safety Report 10672923 (Version 2)
Quarter: 2015Q1

REPORT INFORMATION
  Report Type: Spontaneous
  Country: US (occurrence: US)
  Receive Date: 20141223
  Receipt Date: 20150126
  Transmission Date: 20150720
  Serious: No
  Sender: FDA-Public Use
  Company Number: US-PFIZER INC-2014348853

PATIENT
  Age: 64 Year
  Sex: Female
  Weight: 54 kg

DRUGS (2)
  1. LYRICA [Suspect]
     Active Substance: PREGABALIN
     Indication: NEURALGIA
     Dosage: 150 MG, 1X/DAY (AT NIGHT)
     Dates: start: 201106
  2. LYRICA [Suspect]
     Active Substance: PREGABALIN
     Indication: HEADACHE
     Dosage: UNK

REACTIONS (1)
  - Visual impairment [Not Recovered/Not Resolved]
